FAERS Safety Report 7777839-8 (Version None)
Quarter: 2011Q3

REPORT INFORMATION
  Report Type: 
  Country: None (occurrence: None)
  Receive Date: 20110926
  Receipt Date: 20110915
  Transmission Date: 20111222
  Serious: No
  Sender: FDA-Public Use
  Company Number: US-BIOGENIDEC-2011BI035685

PATIENT
  Age: 51 Year
  Sex: Female

DRUGS (2)
  1. TYSABRI [Suspect]
     Indication: MULTIPLE SCLEROSIS
     Route: 042
     Dates: start: 20110211
  2. TYSABRI [Suspect]
     Route: 042
     Dates: start: 20061016, end: 20080404

REACTIONS (4)
  - FATIGUE [None]
  - MUSCLE SPASMS [None]
  - MUSCLE TIGHTNESS [None]
  - GAIT DISTURBANCE [None]
